FAERS Safety Report 6911270-X (Version None)
Quarter: 2010Q3

REPORT INFORMATION
  Report Type: 
  Country: None (occurrence: None)
  Receive Date: 20100806
  Receipt Date: 20100728
  Transmission Date: 20110219
  Serious: Yes (Death, Hospitalization)
  Sender: FDA-Public Use
  Company Number: CO-JNJFOC-20100704067

PATIENT
  Age: 58 Year
  Sex: Female

DRUGS (4)
  1. REMICADE [Suspect]
     Indication: WEGENER'S GRANULOMATOSIS
     Route: 042
  2. RITUXIMAB [Suspect]
     Indication: WEGENER'S GRANULOMATOSIS
  3. ENALAPRIL [Concomitant]
  4. CLONIDINE [Concomitant]

REACTIONS (5)
  - ASTHENIA [None]
  - DEATH [None]
  - HYPERSENSITIVITY [None]
  - MULTI-ORGAN FAILURE [None]
  - NOSOCOMIAL INFECTION [None]
